FAERS Safety Report 5398871-8 (Version None)
Quarter: 2007Q3

REPORT INFORMATION
  Report Type: 
  Country: None (occurrence: None)
  Receive Date: 20070727
  Receipt Date: 20070724
  Transmission Date: 20080115
  Serious: Yes (Other)
  Sender: FDA-Public Use
  Company Number: PHEH2007US10315

PATIENT
  Sex: Female

DRUGS (1)
  1. TEKTURNA [Suspect]
     Dosage: 150 MG, UNK
     Route: 048

REACTIONS (4)
  - FATIGUE [None]
  - HYPERSOMNIA [None]
  - RASH [None]
  - WEIGHT DECREASED [None]
